FAERS Safety Report 5924643-9 (Version None)
Quarter: 2008Q3

REPORT INFORMATION
  Report Type: 
  Country: None (occurrence: None)
  Receive Date: 20080909
  Receipt Date: 20080624
  Transmission Date: 20090109
  Serious: Yes (Hospitalization)
  Sender: FDA-Public Use
  Company Number: 163-20785-08021727

PATIENT
  Age: 64 Year
  Sex: Male

DRUGS (3)
  1. THALOMID [Suspect]
     Indication: MULTIPLE MYELOMA
     Dosage: 150 MG, 28 DAY, ORAL; 100-200MG, 28 DAY, ORAL
     Route: 048
     Dates: start: 20070821, end: 20070101
  2. THALOMID [Suspect]
     Indication: MULTIPLE MYELOMA
     Dosage: 150 MG, 28 DAY, ORAL; 100-200MG, 28 DAY, ORAL
     Route: 048
     Dates: start: 20080109, end: 20080201
  3. THALOMID [Suspect]
     Indication: MULTIPLE MYELOMA
     Dosage: 150 MG, 28 DAY, ORAL; 100-200MG, 28 DAY, ORAL
     Route: 048
     Dates: start: 20080228

REACTIONS (1)
  - PYREXIA [None]
